FAERS Safety Report 6068573-3 (Version None)
Quarter: 2009Q1

REPORT INFORMATION
  Report Type: 
  Country: None (occurrence: None)
  Receive Date: 20090206
  Receipt Date: 20090113
  Transmission Date: 20090719
  Serious: Yes (Death, Other)
  Sender: FDA-Public Use
  Company Number: JP-PFIZER INC-2009150170

PATIENT

DRUGS (4)
  1. VFEND [Suspect]
     Dosage: 200 MG, 2X/DAY
     Route: 048
     Dates: start: 20081201
  2. METHOTREXATE [Suspect]
     Dosage: UNK
     Route: 042
     Dates: start: 20081209
  3. DRUG, UNSPECIFIED [Suspect]
     Dates: start: 20081209
  4. ANTINEOPLASTIC AGENTS [Concomitant]

REACTIONS (2)
  - ACUTE MYELOID LEUKAEMIA [None]
  - BLOOD CREATININE INCREASED [None]
